FAERS Safety Report 4324880-3 (Version None)
Quarter: 2004Q1

REPORT INFORMATION
  Report Type: 
  Country: None (occurrence: None)
  Receive Date: 20040325
  Receipt Date: 20040325
  Transmission Date: 20041129
  Serious: Yes (Other)
  Sender: FDA-Public Use
  Company Number: None

PATIENT
  Age: 65 Year
  Sex: Male
  Weight: 65.7716 kg

DRUGS (2)
  1. ZICAM NASAL SPRAY (ZINC) MFR: MATRIXX [Suspect]
     Indication: HYPERSENSITIVITY
     Dosage: 1 SPRAY Q NOSTRIL QD
     Route: 045
     Dates: start: 20010101
  2. ZICAM NASAL SPRAY (ZINC) MFR: MATRIXX [Suspect]
     Indication: SINUS DISORDER
     Dosage: 1 SPRAY Q NOSTRIL QD
     Route: 045
     Dates: start: 20010101

REACTIONS (1)
  - ANOSMIA [None]
